FAERS Safety Report 23317500 (Version 6)
Quarter: 2025Q2

REPORT INFORMATION
  Report Type: Spontaneous
  Country: US (occurrence: US)
  Receive Date: 20231219
  Receipt Date: 20250530
  Transmission Date: 20250716
  Serious: Yes (Hospitalization)
  Sender: ROCHE
  Company Number: US-ROCHE-3405502

PATIENT
  Age: 16 Year
  Sex: Male

DRUGS (3)
  1. HEMLIBRA [Suspect]
     Active Substance: EMICIZUMAB-KXWH
     Indication: Factor VIII deficiency
     Dosage: STRENGTH-150MG/ML
     Route: 058
     Dates: start: 202303
  2. AMOXICILLIN [Concomitant]
     Active Substance: AMOXICILLIN
  3. HYDROCODONE [Concomitant]
     Active Substance: HYDROCODONE

REACTIONS (8)
  - Haemorrhage [Not Recovered/Not Resolved]
  - Tooth extraction [Unknown]
  - Intra-abdominal haematoma [Unknown]
  - Full blood count abnormal [Unknown]
  - Gastrointestinal disorder [Unknown]
  - Haemorrhage [Unknown]
  - Ascites [Unknown]
  - Necrosis [Unknown]

NARRATIVE: CASE EVENT DATE: 20230809
